FAERS Safety Report 4986934-8 (Version None)
Quarter: 2006Q2

REPORT INFORMATION
  Report Type: 
  Country: None (occurrence: None)
  Receive Date: 20060501
  Receipt Date: 20060419
  Transmission Date: 20061013
  Serious: No
  Sender: FDA-Public Use
  Company Number: 2006AP01810

PATIENT
  Age: 9451 Day
  Sex: Male
  Weight: 81 kg

DRUGS (5)
  1. SEROQUEL [Suspect]
     Indication: PSYCHOTIC DISORDER
     Route: 048
     Dates: start: 20050713, end: 20051103
  2. LORAZEPAM [Concomitant]
     Indication: ANXIETY DISORDER
  3. IBUPROFEN [Concomitant]
     Indication: PAIN
  4. TEMAZEPAM [Concomitant]
     Indication: SLEEP DISORDER
  5. DEEP HEAT CREAM [Concomitant]
     Indication: PAIN

REACTIONS (2)
  - LEUKOPENIA [None]
  - NEUTROPENIA [None]
